FAERS Safety Report 16144559 (Version 1)
Quarter: 2019Q1

REPORT INFORMATION
  Report Type: Spontaneous
  Country: US (occurrence: US)
  Receive Date: 20190227
  Receipt Date: 20190227
  Transmission Date: 20190418
  Serious: Yes (Hospitalization)
  Sender: FDA-Public Use
  Company Number: None

PATIENT
  Age: 65 Year
  Sex: Female
  Weight: 87 kg

DRUGS (14)
  1. ALBUTEROL. [Concomitant]
     Active Substance: ALBUTEROL
  2. LANCETS [Concomitant]
     Active Substance: DEVICE
  3. POLYETHLENE GLYCOL [Concomitant]
  4. MAGNESIUM OXIDE. [Concomitant]
     Active Substance: MAGNESIUM OXIDE
  5. TACROLIMUS. [Concomitant]
     Active Substance: TACROLIMUS
  6. ENTECAVIR. [Concomitant]
     Active Substance: ENTECAVIR
  7. INSULIN DETEMIR [Concomitant]
     Active Substance: INSULIN DETEMIR
  8. CHOLECALCIFEROL [Concomitant]
     Active Substance: CHOLECALCIFEROL
  9. DICLOFENAC TOPICAL [Concomitant]
  10. AMLODIPINE [Concomitant]
     Active Substance: AMLODIPINE BESYLATE
  11. SITAGLIPTIN [Concomitant]
     Active Substance: SITAGLIPTIN
  12. EPCLUSA [Suspect]
     Active Substance: SOFOSBUVIR\VELPATASVIR
     Indication: HEPATITIS C
     Route: 048
     Dates: start: 20170208, end: 20170726
  13. ASPIRIN. [Concomitant]
     Active Substance: ASPIRIN
  14. TRIAMCINOLONE TOPICAL CREAM 0.1% [Concomitant]
     Active Substance: TRIAMCINOLONE

REACTIONS (10)
  - Diarrhoea [None]
  - Myalgia [None]
  - Nausea [None]
  - Headache [None]
  - Micturition urgency [None]
  - Abdominal discomfort [None]
  - Back pain [None]
  - Pyrexia [None]
  - Vomiting [None]
  - Arthralgia [None]

NARRATIVE: CASE EVENT DATE: 20170807
